FAERS Safety Report 4998390-4 (Version None)
Quarter: 2006Q2

REPORT INFORMATION
  Report Type: 
  Country: None (occurrence: None)
  Receive Date: 20060508
  Receipt Date: 20060425
  Transmission Date: 20061013
  Serious: Yes (Death)
  Sender: FDA-Public Use
  Company Number: PHO-2006-011

PATIENT
  Age: 67 Year
  Sex: Female

DRUGS (1)
  1. PHOTOFRIN [Suspect]
     Indication: PHOTODYNAMIC THERAPY
     Dosage: 2MG/KG IV
     Route: 042
     Dates: start: 19990428

REACTIONS (6)
  - CARDIAC ARREST [None]
  - HYPERTENSION [None]
  - PULMONARY EMBOLISM [None]
  - PULMONARY HAEMORRHAGE [None]
  - PULMONARY INFARCTION [None]
  - RESPIRATORY DISTRESS [None]
